FAERS Safety Report 19288221 (Version 1)
Quarter: 2021Q2

REPORT INFORMATION
  Report Type: Spontaneous
  Country: US (occurrence: US)
  Receive Date: 20210521
  Receipt Date: 20210521
  Transmission Date: 20210717
  Serious: Yes (Hospitalization, Other)
  Sender: FDA-Public Use
  Company Number: US-MYOVANT SCIENCES IRELAND LIMITED-2021MYSCI0400046

PATIENT
  Age: 79 Year
  Sex: Male

DRUGS (2)
  1. ORGOVYX [Suspect]
     Active Substance: RELUGOLIX
     Dosage: 120 MILLIGRAM, QD
     Route: 048
     Dates: start: 20210320
  2. ORGOVYX [Suspect]
     Active Substance: RELUGOLIX
     Indication: PROSTATE CANCER
     Dosage: 360 MILLIGRAM, ONE TIME DOSE
     Route: 048
     Dates: start: 20210319, end: 20210319

REACTIONS (4)
  - Constipation [Unknown]
  - Urinary retention [Unknown]
  - Asthenia [Unknown]
  - Skin wrinkling [Unknown]

NARRATIVE: CASE EVENT DATE: 20210319
